FAERS Safety Report 6573830-8 (Version None)
Quarter: 2010Q1

REPORT INFORMATION
  Report Type: 
  Country: None (occurrence: None)
  Receive Date: 20100208
  Receipt Date: 20100201
  Transmission Date: 20100710
  Serious: Yes (Hospitalization)
  Sender: FDA-Public Use
  Company Number: IT-ABBOTT-10P-083-0623166-00

PATIENT
  Sex: Female

DRUGS (6)
  1. MACLADIN [Suspect]
     Indication: BRONCHITIS
     Dosage: 2 UNITS: 1 DAYS
     Route: 048
     Dates: start: 20081026, end: 20081101
  2. GENTALYN [Suspect]
     Indication: BRONCHITIS
     Dosage: 1 UNIT: 1 DAYS
     Route: 030
     Dates: start: 20081026, end: 20081101
  3. DELTACORTENE [Concomitant]
     Indication: DRUG USE FOR UNKNOWN INDICATION
  4. SYMBICORT [Concomitant]
     Indication: BRONCHOPNEUMOPATHY
  5. KARVEZIDE [Concomitant]
     Indication: HYPERTENSION
  6. CONGESCOR [Concomitant]
     Indication: DRUG USE FOR UNKNOWN INDICATION
     Dosage: 0,5 UNIT

REACTIONS (2)
  - PURPURA [None]
  - TONGUE OEDEMA [None]
